FAERS Safety Report 14342194 (Version 3)
Quarter: 2018Q1

REPORT INFORMATION
  Report Type: Spontaneous
  Country: US (occurrence: US)
  Receive Date: 20180102
  Receipt Date: 20180129
  Transmission Date: 20180509
  Serious: No
  Sender: FDA-Public Use
  Company Number: US-TEVA-812620USA

PATIENT
  Sex: Female

DRUGS (1)
  1. DULOXETINE. [Suspect]
     Active Substance: DULOXETINE
     Route: 065
     Dates: start: 201705

REACTIONS (5)
  - Lip swelling [Not Recovered/Not Resolved]
  - Rash [Recovered/Resolved]
  - Lip blister [Not Recovered/Not Resolved]
  - Lip exfoliation [Not Recovered/Not Resolved]
  - Lip discolouration [Not Recovered/Not Resolved]

NARRATIVE: CASE EVENT DATE: 201706
